FAERS Safety Report 8173472-7 (Version None)
Quarter: 2012Q1

REPORT INFORMATION
  Report Type: 
  Country: None (occurrence: None)
  Receive Date: 20120223
  Receipt Date: 20120210
  Transmission Date: 20120608
  Serious: Yes (Hospitalization)
  Sender: FDA-Public Use
  Company Number: ACO_29426_2012

PATIENT
  Sex: Female

DRUGS (1)
  1. FAMPYRA (DALFAMPRIDINE) TABLET, 10MG [Suspect]
     Indication: PRODUCT USED FOR UNKNOWN INDICATION
     Dosage: ORAL
     Route: 048

REACTIONS (1)
  - CONVULSION [None]
